FAERS Safety Report 14587509 (Version 1)
Quarter: 2018Q1

REPORT INFORMATION
  Report Type: Spontaneous
  Country: GB (occurrence: GB)
  Receive Date: 20180301
  Receipt Date: 20180301
  Transmission Date: 20180509
  Serious: Yes (Other)
  Sender: FDA-Public Use
  Company Number: GB-ASTRAZENECA-2018SE24452

PATIENT
  Age: 72 Year
  Sex: Male
  Weight: 100 kg

DRUGS (9)
  1. BYDUREON [Suspect]
     Active Substance: EXENATIDE
     Route: 065
     Dates: start: 20180207
  2. CYCLIZINE [Concomitant]
     Active Substance: CYCLIZINE
     Dosage: USE AS DIRECTED
     Dates: start: 20171109, end: 20171110
  3. LANSOPRAZOLE. [Concomitant]
     Active Substance: LANSOPRAZOLE
     Dates: start: 20171109
  4. LANTUS [Concomitant]
     Active Substance: INSULIN GLARGINE
     Dosage: USE AS DIRECTED
     Dates: start: 20171109
  5. DAPAGLIFLOZIN. [Concomitant]
     Active Substance: DAPAGLIFLOZIN
     Dates: start: 20171109, end: 20180207
  6. APIDRA [Concomitant]
     Active Substance: INSULIN GLULISINE
     Dosage: USE AS DIRECTED
     Dates: start: 20171109
  7. METFORMIN [Concomitant]
     Active Substance: METFORMIN HYDROCHLORIDE
     Dates: start: 20171109, end: 20180207
  8. RAMIPRIL. [Concomitant]
     Active Substance: RAMIPRIL
     Dates: start: 20171109
  9. EZETIMIBE. [Concomitant]
     Active Substance: EZETIMIBE
     Dates: start: 20171109

REACTIONS (1)
  - Pancreatic carcinoma [Unknown]

NARRATIVE: CASE EVENT DATE: 20180207
